FAERS Safety Report 9950441 (Version 2)
Quarter: 2014Q1

REPORT INFORMATION
  Report Type: Report from Study
  Country: US (occurrence: US)
  Receive Date: 20140304
  Receipt Date: 20140304
  Transmission Date: 20141002
  Serious: No
  Sender: FDA-Public Use
  Company Number: US-ABBVIE-13P-163-1033280-00

PATIENT
  Age: 57 Year
  Sex: Male

DRUGS (10)
  1. HUMIRA [Suspect]
     Indication: CROHN^S DISEASE
     Dates: start: 20121024, end: 20130320
  2. HUMIRA [Suspect]
     Dates: start: 201303
  3. BYSTOLIC [Concomitant]
     Indication: HYPERTENSION
  4. PAXIL [Concomitant]
     Indication: CROHN^S DISEASE
  5. LOMOTIL [Concomitant]
     Indication: DIARRHOEA
     Dosage: AS NEEDED
  6. LOMOTIL [Concomitant]
  7. B12 [Concomitant]
     Indication: VITAMIN SUPPLEMENTATION
     Dosage: EVERY MONTH
     Route: 050
  8. COLESTIPOL [Concomitant]
     Indication: CROHN^S DISEASE
     Dosage: 3-4 PER DAY
  9. COLESTIPOL [Concomitant]
     Indication: DIARRHOEA
  10. GAS-EX [Concomitant]
     Indication: ABDOMINAL DISTENSION

REACTIONS (6)
  - Large intestinal ulcer [Not Recovered/Not Resolved]
  - Injection site pain [Not Recovered/Not Resolved]
  - Crohn^s disease [Not Recovered/Not Resolved]
  - Drug ineffective [Not Recovered/Not Resolved]
  - Large intestine polyp [Not Recovered/Not Resolved]
  - Glossodynia [Not Recovered/Not Resolved]
